FAERS Safety Report 5126366-5 (Version None)
Quarter: 2006Q4

REPORT INFORMATION
  Report Type: 
  Country: None (occurrence: None)
  Receive Date: 20061010
  Receipt Date: 20060928
  Transmission Date: 20070319
  Serious: No
  Sender: FDA-Public Use
  Company Number: 06H-163-0310517-00

PATIENT
  Age: 61 Year
  Sex: Female

DRUGS (6)
  1. LIDOCAINE HCL [Suspect]
     Indication: LOCAL ANAESTHESIA
  2. BENZOCAINE (BENZOCAINE) [Suspect]
     Indication: LOCAL ANAESTHESIA
     Dosage: TOPICAL
     Route: 061
  3. MEPERIDINE HCL [Concomitant]
  4. MIDAZOLAM HCL [Concomitant]
  5. ATROPINE [Concomitant]
  6. 10,000 EPINEPHRINE (EPINEPHRINE) [Concomitant]

REACTIONS (2)
  - BRONCHIAL OBSTRUCTION [None]
  - METHAEMOGLOBINAEMIA [None]
